FAERS Safety Report 14816200 (Version 1)
Quarter: 2018Q2

REPORT INFORMATION
  Report Type: Report from Study
  Country: CO (occurrence: CO)
  Receive Date: 20180426
  Receipt Date: 20180426
  Transmission Date: 20180711
  Serious: Yes (Other)
  Sender: FDA-Public Use
  Company Number: PHHY2018CO071062

PATIENT
  Age: 48 Year
  Sex: Male

DRUGS (1)
  1. TASIGNA [Suspect]
     Active Substance: NILOTINIB
     Indication: CHRONIC MYELOID LEUKAEMIA
     Dosage: 200 MG, Q12H
     Route: 048

REACTIONS (4)
  - Discomfort [Unknown]
  - Cellulitis [Unknown]
  - Haemorrhage [Unknown]
  - Swelling [Unknown]

NARRATIVE: CASE EVENT DATE: 20180413
